FAERS Safety Report 8486734 (Version 2)
Quarter: 2013Q1

REPORT INFORMATION
  Report Type: Spontaneous
  Country: DE (occurrence: DE)
  Receive Date: 20120402
  Receipt Date: 20130327
  Transmission Date: 20140127
  Serious: Yes (Death)
  Sender: FDA-Public Use
  Company Number: DE-B.I. PHARMACEUTICALS,INC./RIDGEFIELD-2012-DE-00898DE

PATIENT
  Age: 69 Year
  Sex: Male
  Weight: 67 kg

DRUGS (10)
  1. PRADAXA [Suspect]
     Indication: ATRIAL FIBRILLATION
     Dosage: 300 MG
     Dates: start: 20120301, end: 20120312
  2. PRADAXA [Suspect]
     Indication: CEREBROVASCULAR ACCIDENT
  3. MIRTAZAPIN [Concomitant]
     Indication: POST STROKE DEPRESSION
     Dosage: 30 MG
     Dates: start: 201201, end: 20120311
  4. METOHEXAL [Concomitant]
     Indication: HYPERTENSION
     Dosage: 47.5 MG
     Dates: end: 20120311
  5. GABAPENTIN [Concomitant]
     Indication: NEURALGIA
     Dosage: 900 MG
     Dates: start: 20120301, end: 20120311
  6. SIMVAHEXAL [Concomitant]
     Indication: CORONARY ARTERY DISEASE
     Dates: end: 20120311
  7. SEROQUEL [Concomitant]
     Indication: DELUSION
     Dosage: 25 MG
     Dates: start: 20120217
  8. FERROL SANOL TROPFEN [Concomitant]
     Indication: ANAEMIA
     Dosage: 40 ANZ
  9. NOVAMINSULFON [Concomitant]
     Indication: PAIN
     Dosage: 90 ANZ
     Dates: start: 20120307
  10. MOVICOL [Concomitant]
     Indication: CONSTIPATION
     Dosage: 60 ANZ
     Dates: start: 20120227

REACTIONS (2)
  - Upper gastrointestinal haemorrhage [Fatal]
  - Shock haemorrhagic [Fatal]
